FAERS Safety Report 8030814-0 (Version None)
Quarter: 2012Q1

REPORT INFORMATION
  Report Type: 
  Country: None (occurrence: None)
  Receive Date: 20120109
  Receipt Date: 20120106
  Transmission Date: 20120608
  Serious: Yes (Other)
  Sender: FDA-Public Use
  Company Number: US-PFIZER INC-2012004977

PATIENT
  Sex: Male
  Weight: 68.934 kg

DRUGS (10)
  1. LIPITOR [Suspect]
     Dosage: 40 MG,DAILY
  2. SOTALOL [Concomitant]
     Dosage: 120 MG,DAILY
  3. LANOXIN [Concomitant]
     Dosage: 0.25 MG,DAILY
  4. COREG [Concomitant]
     Dosage: 6.25 MG, 2X/DAY
  5. ENALAPRIL [Concomitant]
     Dosage: 20 MG, 2X/DAY
  6. LASIX [Concomitant]
     Dosage: 20 MG,DAILY
  7. POTASSIUM CHLORIDE [Concomitant]
     Dosage: 20 MG,DAILY
  8. OSCAL [Concomitant]
     Indication: BONE DISORDER
     Dosage: 500 MG,DAILY
  9. COUMADIN [Suspect]
     Indication: CARDIAC DISORDER
     Dosage: 2 MG,DAILY
     Dates: start: 19970101
  10. MEXILETINE [Concomitant]
     Dosage: 150 MG,DAILY

REACTIONS (2)
  - DIABETES MELLITUS [None]
  - PROSTATE CANCER [None]
